FAERS Safety Report 23332978 (Version 2)
Quarter: 2024Q1

REPORT INFORMATION
  Report Type: Spontaneous
  Country: ES (occurrence: ES)
  Receive Date: 20231222
  Receipt Date: 20240314
  Transmission Date: 20240410
  Serious: Yes (Hospitalization)
  Sender: FDA-Public Use
  Company Number: ES-SUN PHARMACEUTICAL INDUSTRIES LTD-2023RR-424592

PATIENT
  Age: 59 Year
  Sex: Female

DRUGS (9)
  1. MORPHINE [Interacting]
     Active Substance: MORPHINE
     Indication: Juvenile idiopathic arthritis
     Dosage: MORPHINE FROM 31/03/23 0.950 MG/DAY - 16/06/23 INCREASED TO 1.8 MG/DAY
     Route: 029
     Dates: start: 20230331, end: 20230615
  2. MORPHINE [Interacting]
     Active Substance: MORPHINE
     Dosage: 1.8 MILLIGRAM, QD
     Route: 065
     Dates: start: 20230616
  3. OXYCODONE [Interacting]
     Active Substance: OXYCODONE\OXYCODONE HYDROCHLORIDE
     Indication: Juvenile idiopathic arthritis
     Dosage: 10 MILLIGRAM, 1DOSE/ASNECESSA
     Route: 048
     Dates: start: 20220225, end: 20230626
  4. RIVOTRIL [Interacting]
     Active Substance: CLONAZEPAM
     Indication: Depression
     Dosage: 0.5 MILLIGRAM, TID
     Route: 048
     Dates: start: 2023, end: 20230629
  5. PRIALT [Interacting]
     Active Substance: ZICONOTIDE ACETATE
     Indication: Juvenile idiopathic arthritis
     Dosage: 1.9 MILLIGRAM, QD
     Route: 029
     Dates: start: 20230331, end: 20230530
  6. PRIALT [Interacting]
     Active Substance: ZICONOTIDE ACETATE
     Dosage: 1.48 MCG, QD
     Route: 065
     Dates: start: 20230616, end: 20230629
  7. PRIALT [Interacting]
     Active Substance: ZICONOTIDE ACETATE
     Dosage: 2.16 MCG, QD
     Route: 065
     Dates: start: 20230531, end: 20230615
  8. PRIALT [Interacting]
     Active Substance: ZICONOTIDE ACETATE
     Dosage: 2 MCG, QD
     Route: 065
     Dates: start: 20221214, end: 20230131
  9. LORMETAZEPAM [Interacting]
     Active Substance: LORMETAZEPAM
     Indication: Depression
     Dosage: 2 MILLIGRAM, QD
     Route: 048
     Dates: start: 20230610, end: 20230626

REACTIONS (2)
  - Encephalopathy [Recovered/Resolved]
  - Confusional state [Recovered/Resolved]

NARRATIVE: CASE EVENT DATE: 20230616
